FAERS Safety Report 8814377 (Version 1)
Quarter: 2012Q4

REPORT INFORMATION
  Report Type: Spontaneous
  Country: US (occurrence: None)
  Receive Date: 20120926
  Receipt Date: 20120926
  Transmission Date: 20130627
  Serious: Yes (Other)
  Sender: FDA-Public Use
  Company Number: AUR-APL-2012-04060

PATIENT
  Age: 51 Year
  Sex: Female
  Weight: 71.65 kg

DRUGS (9)
  1. CEFADROXIL [Suspect]
     Dates: start: 2012
  2. CELEBREX [Suspect]
  3. LYRICA [Suspect]
     Dosage: 400 mg (200 mg, 2 in 1 D),  Unknown
     Dates: start: 2011
  4. DEPAKOTE [Suspect]
     Dosage: 1000 mg (500 mg, 2 in 1 D), Unknown
  5. XANAX (ALPRAZOLAM) [Concomitant]
  6. TRAMADOL (TRAMADOL) [Concomitant]
  7. SOMA (CARISOPRDOL) [Concomitant]
  8. FLUTICASONE (FLUTICASONE) [Concomitant]
  9. SYMBICORT(BUDESONIDE W/ FORMOTEROL FUMARATE) [Concomitant]

REACTIONS (12)
  - Weight increased [None]
  - Oedema peripheral [None]
  - Feeling abnormal [None]
  - Cervix carcinoma recurrent [None]
  - Amnesia [None]
  - Fibromyalgia [None]
  - Condition aggravated [None]
  - Anxiety [None]
  - Depression [None]
  - Disturbance in attention [None]
  - Convulsion [None]
  - Pneumonia [None]
